FAERS Safety Report 5117560-8 (Version None)
Quarter: 2006Q3

REPORT INFORMATION
  Report Type: 
  Country: None (occurrence: None)
  Receive Date: 20060926
  Receipt Date: 20060906
  Transmission Date: 20061208
  Serious: Yes (Hospitalization, Other)
  Sender: FDA-Public Use
  Company Number: US200609001544

PATIENT
  Sex: Female

DRUGS (8)
  1. FORTEO [Suspect]
     Indication: OSTEOPOROSIS
     Dosage: 20 UG
     Dates: end: 20060301
  2. FORTEO [Concomitant]
  3. LASIX [Concomitant]
  4. LANOXIN [Concomitant]
  5. COUMADIN [Concomitant]
  6. PAXIL [Concomitant]
  7. CARDURA [Concomitant]
  8. LISINOPRIL [Concomitant]

REACTIONS (10)
  - ABDOMINAL PAIN UPPER [None]
  - DIVERTICULITIS [None]
  - FALL [None]
  - HERNIA [None]
  - HIP FRACTURE [None]
  - MYOCARDIAL INFARCTION [None]
  - PAIN IN EXTREMITY [None]
  - PHARMACEUTICAL PRODUCT COMPLAINT [None]
  - PNEUMONIA [None]
  - THROMBOSIS [None]
